FAERS Safety Report 11359658 (Version 4)
Quarter: 2016Q1

REPORT INFORMATION
  Report Type: Report from Study
  Country: US (occurrence: US)
  Receive Date: 20150808
  Receipt Date: 20160205
  Transmission Date: 20160525
  Serious: No
  Sender: FDA-Public Use
  Company Number: PHEH2015US014895

PATIENT
  Sex: Female

DRUGS (2)
  1. SIGNIFOR LAR [Suspect]
     Active Substance: PASIREOTIDE
     Indication: ACROMEGALY
     Dosage: 40 MG, QMO
     Route: 030
     Dates: start: 20150625, end: 20150921
  2. SIGNIFOR LAR [Suspect]
     Active Substance: PASIREOTIDE
     Indication: GIGANTISM

REACTIONS (2)
  - Hyperglycaemia [Unknown]
  - Maternal exposure during pregnancy [Not Recovered/Not Resolved]
